FAERS Safety Report 7529929-2 (Version None)
Quarter: 2011Q2

REPORT INFORMATION
  Report Type: 
  Country: None (occurrence: None)
  Receive Date: 20110531
  Receipt Date: 20110518
  Transmission Date: 20111010
  Serious: Yes (Other)
  Sender: FDA-Public Use
  Company Number: 2011SP023205

PATIENT
  Age: 52 Year
  Sex: Female

DRUGS (4)
  1. PEGASYS [Suspect]
     Indication: HEPATITIS C
  2. PEG-INTRON [Suspect]
     Indication: HEPATITIS C
     Dates: start: 20110518
  3. RIBAVIRIN [Suspect]
     Indication: HEPATITIS C
  4. COPEGUS [Suspect]
     Indication: HEPATITIS C

REACTIONS (10)
  - CONVULSION [None]
  - MULTIPLE SCLEROSIS [None]
  - HEADACHE [None]
  - MYALGIA [None]
  - MUSCLE TWITCHING [None]
  - PYREXIA [None]
  - ANAEMIA [None]
  - TREMOR [None]
  - FEELING COLD [None]
  - ASTHENIA [None]
